FAERS Safety Report 13487805 (Version 3)
Quarter: 2020Q2

REPORT INFORMATION
  Report Type: Spontaneous
  Country: US (occurrence: US)
  Receive Date: 20170426
  Receipt Date: 20200417
  Transmission Date: 20200713
  Serious: No
  Sender: FDA-Public Use
  Company Number: US-009507513-1704USA001029

PATIENT
  Sex: Female

DRUGS (1)
  1. NUVARING [Suspect]
     Active Substance: ETHINYL ESTRADIOL\ETONOGESTREL
     Dosage: 3 WEEKS IN 1 WEEK OUT; STRENGTH: .015/.12 (UNITS NOT PROVIDED)
     Route: 067

REACTIONS (5)
  - Dysmenorrhoea [Not Recovered/Not Resolved]
  - Incorrect product administration duration [Unknown]
  - Intentional medical device removal by patient [Unknown]
  - Inappropriate schedule of product administration [Unknown]
  - Vaginal haemorrhage [Not Recovered/Not Resolved]
